FAERS Safety Report 23082789 (Version 1)
Quarter: 2023Q4

REPORT INFORMATION
  Report Type: Spontaneous
  Country: US (occurrence: US)
  Receive Date: 20231019
  Receipt Date: 20231019
  Transmission Date: 20240109
  Serious: Yes (Death, Other)
  Sender: FDA-Public Use
  Company Number: US-BRISTOL-MYERS SQUIBB COMPANY-2023-149036

PATIENT
  Age: 67 Year
  Sex: Female

DRUGS (6)
  1. IDHIFA [Suspect]
     Active Substance: ENASIDENIB MESYLATE
     Indication: Myelofibrosis
     Route: 048
  2. RUXOLITINIB [Concomitant]
     Active Substance: RUXOLITINIB
     Indication: Product used for unknown indication
  3. DECITABINE [Concomitant]
     Active Substance: DECITABINE
     Indication: Product used for unknown indication
  4. FEDRATINIB [Concomitant]
     Active Substance: FEDRATINIB
     Indication: Product used for unknown indication
  5. ARANESP [Concomitant]
     Active Substance: DARBEPOETIN ALFA
     Indication: Product used for unknown indication
  6. PACRITINIB [Concomitant]
     Active Substance: PACRITINIB
     Indication: Product used for unknown indication

REACTIONS (2)
  - Death [Fatal]
  - Off label use [Unknown]

NARRATIVE: CASE EVENT DATE: 20231014
